FAERS Safety Report 26098933 (Version 1)
Quarter: 2025Q4

REPORT INFORMATION
  Report Type: Spontaneous
  Country: EU (occurrence: EU)
  Receive Date: 20251127
  Receipt Date: 20251127
  Transmission Date: 20260117
  Serious: Yes (Other)
  Sender: CELLTRION
  Company Number: EU-ROCHE-10000435075

PATIENT

DRUGS (6)
  1. RITUXIMAB [Suspect]
     Active Substance: RITUXIMAB
     Indication: Mantle cell lymphoma
     Dosage: UNK, EVERY 8 WEEKS
     Route: 042
     Dates: start: 202501
  2. CYCLOPHOSPHAMIDE [Concomitant]
     Active Substance: CYCLOPHOSPHAMIDE
     Indication: Mantle cell lymphoma
     Dosage: UNK
     Dates: start: 202501
  3. EPIRUBICIN [Concomitant]
     Active Substance: EPIRUBICIN
     Indication: Mantle cell lymphoma
     Dosage: UNK
     Dates: start: 202501
  4. VINCRISTINE [Concomitant]
     Active Substance: VINCRISTINE
     Indication: Mantle cell lymphoma
     Dosage: UNK
     Dates: start: 202501
  5. PREDNISONE [Concomitant]
     Active Substance: PREDNISONE
     Indication: Mantle cell lymphoma
     Dosage: UNK
     Dates: start: 202501
  6. IBRUTINIB [Concomitant]
     Active Substance: IBRUTINIB
     Dosage: UNK

REACTIONS (2)
  - IgG deficiency [Unknown]
  - Intentional product use issue [Unknown]
